FAERS Safety Report 10243234 (Version 1)
Quarter: 2014Q2

REPORT INFORMATION
  Report Type: Not Available
  Country: PL (occurrence: PL)
  Receive Date: 20140618
  Receipt Date: 20140618
  Transmission Date: 20141212
  Serious: Yes (Life-Threatening)
  Sender: FDA-Public Use
  Company Number: PL-BEH-2014043147

PATIENT
  Age: 68 Year
  Sex: Male
  Weight: 65 kg

DRUGS (2)
  1. SANDOGLOBULINA [Suspect]
     Indication: CHRONIC INFLAMMATORY DEMYELINATING POLYRADICULONEUROPATHY
     Dosage: 2 G / 1 KG
     Route: 042
     Dates: start: 20140113, end: 20140116
  2. SANDOGLOBULINA [Suspect]
     Indication: CHRONIC INFLAMMATORY DEMYELINATING POLYRADICULONEUROPATHY
     Dosage: 2 G / 1 KG
     Route: 042
     Dates: start: 20140113, end: 20140116

REACTIONS (1)
  - Renal failure acute [Recovered/Resolved]
